FAERS Safety Report 5079716-2 (Version None)
Quarter: 2006Q3

REPORT INFORMATION
  Report Type: 
  Country: None (occurrence: None)
  Receive Date: 20060808
  Receipt Date: 20060718
  Transmission Date: 20061208
  Serious: Yes (Hospitalization, Other)
  Sender: FDA-Public Use
  Company Number: USA021022980

PATIENT
  Age: 89 Year
  Sex: Female
  Weight: 45.5 kg

DRUGS (23)
  1. INSULIN (INSULIN, ANIMAL) VIAL [Suspect]
     Indication: DIABETES MELLITUS
     Dosage: SUBCUTANEOUS
     Route: 058
  2. HUMULIN N [Suspect]
     Indication: DIABETES MELLITUS
     Dosage: SEE IMAGE
     Route: 058
     Dates: start: 19990101
  3. HUMULIN N [Suspect]
     Indication: DIABETES MELLITUS
     Dosage: SEE IMAGE
     Route: 058
     Dates: start: 19990101
  4. HUMULIN N [Suspect]
  5. HUMALOG [Suspect]
     Indication: DIABETES MELLITUS
     Dosage: SEE IMAGE
     Route: 058
     Dates: start: 19960101
  6. HUMALOG [Suspect]
     Indication: DIABETES MELLITUS
     Dosage: SEE IMAGE
     Route: 058
     Dates: start: 19960101
  7. HUMALOG [Suspect]
     Indication: DIABETES MELLITUS
     Dosage: SEE IMAGE
     Route: 058
     Dates: start: 19960101
  8. HUMALOG [Suspect]
  9. HUMALOG [Suspect]
  10. HUMULIN R [Suspect]
     Indication: DIABETES MELLITUS
     Dosage: SUBCUTANEOUS
     Route: 058
     Dates: start: 19990101
  11. LACTULOSE [Concomitant]
  12. SYNTHROID [Concomitant]
  13. ESTRADIOL INJ [Concomitant]
  14. VITAMINS NOS [Concomitant]
  15. DIOVAN [Concomitant]
  16. VITAMIN B-12 [Concomitant]
  17. LANTUS [Concomitant]
  18. NOVOLOG [Concomitant]
  19. XANAX [Concomitant]
  20. PRAVACHOL [Concomitant]
  21. LASIX [Concomitant]
  22. PLENDIL [Concomitant]
  23. ATACAND [Concomitant]

REACTIONS (30)
  - ABDOMINAL DISTENSION [None]
  - ACOUSTIC NEUROMA [None]
  - AUTONOMIC NEUROPATHY [None]
  - BLEPHARITIS [None]
  - BLINDNESS UNILATERAL [None]
  - BLOOD CHOLESTEROL INCREASED [None]
  - BLOOD GLUCOSE DECREASED [None]
  - BLOOD GLUCOSE INCREASED [None]
  - CYSTITIS [None]
  - DIABETIC RETINOPATHY [None]
  - DRUG INEFFECTIVE [None]
  - DYSPEPSIA [None]
  - DYSPHONIA [None]
  - FUNGAL INFECTION [None]
  - HYPERHIDROSIS [None]
  - HYPERSENSITIVITY [None]
  - HYPERTENSION [None]
  - IMPAIRED GASTRIC EMPTYING [None]
  - INCONTINENCE [None]
  - INJECTION SITE CALCIFICATION [None]
  - INSOMNIA [None]
  - MACULAR DEGENERATION [None]
  - MALABSORPTION [None]
  - MUSCULOSKELETAL PAIN [None]
  - PRURITUS [None]
  - PSEUDOPHAKIA [None]
  - RASH PRURITIC [None]
  - SCOTOMA [None]
  - SEPSIS [None]
  - WEIGHT DECREASED [None]
